FAERS Safety Report 14425867 (Version 1)
Quarter: 2018Q1

REPORT INFORMATION
  Report Type: Spontaneous
  Country: US (occurrence: US)
  Receive Date: 20180123
  Receipt Date: 20180123
  Transmission Date: 20180509
  Serious: Yes (Other)
  Sender: FDA-Public Use
  Company Number: US-LEXICON PHARMACEUTICALS, INC-18-1606-00051

PATIENT
  Sex: Male

DRUGS (1)
  1. TELOTRISTAT ETHYL [Suspect]
     Active Substance: TELOTRISTAT ETHYL
     Indication: CARCINOID TUMOUR
     Route: 048
     Dates: start: 20170614

REACTIONS (7)
  - Flatulence [Unknown]
  - Metastases to peritoneum [Unknown]
  - Nocturia [Unknown]
  - Blood pressure increased [Unknown]
  - Headache [Unknown]
  - Diarrhoea [Unknown]
  - Abdominal distension [Unknown]
